FAERS Safety Report 10646234 (Version 1)
Quarter: 2014Q4

REPORT INFORMATION
  Report Type: Spontaneous
  Country: US (occurrence: None)
  Receive Date: 20141202
  Receipt Date: 20141202
  Transmission Date: 20150529
  Serious: No
  Sender: FDA-Public Use
  Company Number: 2013TUS003230

PATIENT
  Sex: Female

DRUGS (1)
  1. NESINA [Suspect]
     Active Substance: ALOGLIPTIN BENZOATE
     Route: 048
     Dates: start: 2013, end: 2013

REACTIONS (4)
  - Nausea [None]
  - Rash [None]
  - Vomiting [None]
  - Diarrhoea [None]

NARRATIVE: CASE EVENT DATE: 2013
